FAERS Safety Report 25445988 (Version 1)
Quarter: 2025Q2

REPORT INFORMATION
  Report Type: Spontaneous
  Country: FR (occurrence: FR)
  Receive Date: 20250617
  Receipt Date: 20250617
  Transmission Date: 20250717
  Serious: Yes (Other)
  Sender: MYLAN
  Company Number: FR-MYLANLABS-2025M1049462

PATIENT
  Age: 75 Year
  Sex: Female

DRUGS (2)
  1. XANAX [Suspect]
     Active Substance: ALPRAZOLAM
     Indication: Mental impairment
  2. VENLAFAXINE [Concomitant]
     Active Substance: VENLAFAXINE HYDROCHLORIDE
     Indication: Depression

REACTIONS (7)
  - Hallucination [Unknown]
  - Feeling abnormal [Unknown]
  - Screaming [Unknown]
  - Middle insomnia [Unknown]
  - Anxiety [Unknown]
  - Agitation [Unknown]
  - Aggression [Unknown]
